FAERS Safety Report 9792922 (Version 2)
Quarter: 2014Q1

REPORT INFORMATION
  Report Type: Spontaneous
  Country: US (occurrence: US)
  Receive Date: 20140102
  Receipt Date: 20140131
  Transmission Date: 20141002
  Serious: No
  Sender: FDA-Public Use
  Company Number: US-009507513-1401USA000248

PATIENT
  Age: 78 Year
  Sex: Male
  Weight: 64.4 kg

DRUGS (3)
  1. CLARITIN [Suspect]
     Indication: NASOPHARYNGITIS
     Dosage: 10 MG, QPM
     Route: 048
     Dates: start: 20131216
  2. CLARITIN [Suspect]
     Indication: RHINORRHOEA
     Dosage: UNK, QPM
     Route: 048
     Dates: start: 20131215
  3. ASPIRIN [Concomitant]
     Indication: PRODUCT USED FOR UNKNOWN INDICATION
     Dosage: UNK, QD

REACTIONS (1)
  - Drug effect decreased [Unknown]
